FAERS Safety Report 18343929 (Version 2)
Quarter: 2022Q2

REPORT INFORMATION
  Report Type: Spontaneous
  Country: US (occurrence: US)
  Receive Date: 20201005
  Receipt Date: 20220420
  Transmission Date: 20220721
  Serious: Yes (Other)
  Sender: FDA-Public Use
  Company Number: US-SAARTEMIS-SAC202009300444

PATIENT
  Age: 44 Year
  Sex: Male

DRUGS (1)
  1. ZANTAC [Suspect]
     Active Substance: RANITIDINE HYDROCHLORIDE
     Indication: Gastrooesophageal reflux disease
     Dosage: 150 MG, QD
     Dates: start: 199601, end: 201901

REACTIONS (2)
  - Oesophageal carcinoma [Unknown]
  - Thyroid cancer stage II [Unknown]

NARRATIVE: CASE EVENT DATE: 20151101
